FAERS Safety Report 13363434 (Version 1)
Quarter: 2017Q1

REPORT INFORMATION
  Report Type: Spontaneous
  Country: US (occurrence: US)
  Receive Date: 20170323
  Receipt Date: 20170323
  Transmission Date: 20170429
  Serious: Yes (Other)
  Sender: FDA-Public Use
  Company Number: US-PFIZER INC-2017123659

PATIENT
  Sex: Female

DRUGS (1)
  1. CELEBREX [Suspect]
     Active Substance: CELECOXIB
     Dosage: 200 MG, 1X/DAY

REACTIONS (8)
  - Cataract [Unknown]
  - Concussion [Unknown]
  - Fatigue [Unknown]
  - Deafness [Unknown]
  - Tinnitus [Unknown]
  - Fall [Unknown]
  - Pneumonia [Unknown]
  - Somnolence [Unknown]
